FAERS Safety Report 9893244 (Version 4)
Quarter: 2014Q1

REPORT INFORMATION
  Report Type: Report from Study
  Country: JP (occurrence: JP)
  Receive Date: 20140213
  Receipt Date: 20140318
  Transmission Date: 20141002
  Serious: Yes (Death)
  Sender: FDA-Public Use
  Company Number: JP-009507513-1401JPN012588

PATIENT
  Age: 68 Year
  Sex: Male
  Weight: 61 kg

DRUGS (18)
  1. CANCIDAS FOR INTRAVENOUS DRIP INFUSION 50MG [Suspect]
     Indication: BRONCHOPULMONARY ASPERGILLOSIS
     Dosage: 50 MG, QD
     Route: 041
     Dates: start: 20131222, end: 20131226
  2. CANCIDAS FOR INTRAVENOUS DRIP INFUSION 70MG [Suspect]
     Indication: BRONCHOPULMONARY ASPERGILLOSIS
     Dosage: 70 MG, ONCE
     Route: 041
     Dates: start: 20131221, end: 20131221
  3. SALIPARA-CODEINE [Suspect]
     Indication: PNEUMONIA
     Dosage: 6 ML, TID
     Route: 048
     Dates: start: 20131221
  4. AZILVA [Concomitant]
     Indication: HYPERTENSION
     Dosage: 20 MG, QD
     Route: 048
     Dates: start: 20130509
  5. ATOVAQUONE [Concomitant]
     Indication: PROPHYLAXIS
     Dosage: 1 ML, BID
     Route: 048
     Dates: start: 20131221
  6. ALLOPURINOL [Concomitant]
     Indication: HYPERURICAEMIA
     Dosage: 100 MG, BID
     Route: 048
     Dates: start: 20131003
  7. GENINAX [Concomitant]
     Indication: PNEUMONIA
     Dosage: 200 MG, QD
     Route: 048
     Dates: start: 20131219, end: 20131225
  8. ASVERIN [Concomitant]
     Indication: PNEUMONIA
     Dosage: 20 MG, TID
     Route: 048
     Dates: start: 20131114
  9. PREDONINE [Concomitant]
     Indication: INTERSTITIAL LUNG DISEASE
     Dosage: 60 MG, QD
     Route: 051
     Dates: start: 20131219
  10. TAKEPRON [Concomitant]
     Indication: PROPHYLAXIS AGAINST GASTROINTESTINAL ULCER
     Dosage: 15 MG, QD
     Route: 048
     Dates: start: 20131219
  11. FINIBAX [Concomitant]
     Indication: PNEUMONIA
     Dosage: 0.5 MG, QD
     Route: 051
     Dates: start: 20131220, end: 201312
  12. VANCOMYCIN [Concomitant]
     Indication: PNEUMONIA STAPHYLOCOCCAL
     Dosage: 1.5 G, QD
     Route: 051
     Dates: start: 20131221, end: 20131226
  13. HUMULIN R [Concomitant]
     Indication: DIABETES MELLITUS
     Dosage: 18(UNDER1000UNIT), QD
     Route: 051
     Dates: start: 20131220
  14. SENECA SNAKEROOT [Concomitant]
     Indication: PNEUMONIA
     Dosage: 10 ML, TID
     Route: 048
     Dates: start: 20131221
  15. SENNOSIDES [Concomitant]
     Indication: CONSTIPATION
     Dosage: 24 MG, PRN
     Route: 048
     Dates: start: 20131224
  16. DENOSINE [Concomitant]
     Indication: PNEUMONIA CYTOMEGALOVIRAL
     Dosage: 150 MG, QD
     Route: 051
     Dates: start: 20131224, end: 20131226
  17. ADONA [Concomitant]
     Indication: HAEMOSTASIS
     Dosage: 100 MG, QD
     Route: 051
     Dates: start: 20131225, end: 20131227
  18. TRANSAMIN [Concomitant]
     Indication: HAEMOSTASIS
     Dosage: 10 ML, QD
     Route: 051
     Dates: start: 20131225, end: 20131227

REACTIONS (2)
  - Interstitial lung disease [Fatal]
  - Constipation [Not Recovered/Not Resolved]
